FAERS Safety Report 22142251 (Version 1)
Quarter: 2023Q1

REPORT INFORMATION
  Report Type: Spontaneous
  Country: CN (occurrence: CN)
  Receive Date: 20230327
  Receipt Date: 20230327
  Transmission Date: 20230418
  Serious: Yes (Other)
  Sender: FDA-Public Use
  Company Number: CN-PFIZER INC-PV202300055512

PATIENT
  Age: 83 Year
  Sex: Male

DRUGS (5)
  1. DIFLUCAN [Suspect]
     Active Substance: FLUCONAZOLE
     Indication: Fungal sepsis
     Dosage: 400 MG, 1X/DAY
     Route: 041
     Dates: start: 20230227
  2. MICAFUNGIN SODIUM [Suspect]
     Active Substance: MICAFUNGIN SODIUM
     Indication: Fungal sepsis
     Dosage: 100 MG, 1X/DAY
     Route: 041
     Dates: start: 20230220, end: 20230223
  3. MICAFUNGIN SODIUM [Suspect]
     Active Substance: MICAFUNGIN SODIUM
     Dosage: 150 MG, 1X/DAY
     Route: 041
     Dates: start: 20230223, end: 20230227
  4. MICAFUNGIN SODIUM [Suspect]
     Active Substance: MICAFUNGIN SODIUM
     Dosage: 200 MG, 1X/DAY
     Route: 041
     Dates: start: 20230227, end: 20230301
  5. MICAFUNGIN SODIUM [Suspect]
     Active Substance: MICAFUNGIN SODIUM
     Dosage: 200 MG, 1X/DAY
     Route: 041
     Dates: start: 20230301

REACTIONS (2)
  - Hepatic function abnormal [Recovering/Resolving]
  - Off label use [Unknown]

NARRATIVE: CASE EVENT DATE: 20230227
